FAERS Safety Report 17825732 (Version 5)
Quarter: 2022Q1

REPORT INFORMATION
  Report Type: Spontaneous
  Country: US (occurrence: None)
  Receive Date: 20200526
  Receipt Date: 20220121
  Transmission Date: 20220423
  Serious: Yes (Hospitalization, Other)
  Sender: FDA-Public Use
  Company Number: 2020SE54242

PATIENT
  Age: 17559 Day
  Sex: Female
  Weight: 103.9 kg

DRUGS (74)
  1. FARXIGA [Suspect]
     Active Substance: DAPAGLIFLOZIN PROPANEDIOL
     Indication: Type 2 diabetes mellitus
     Route: 048
     Dates: start: 20150101, end: 20190322
  2. FARXIGA [Suspect]
     Active Substance: DAPAGLIFLOZIN PROPANEDIOL
     Indication: Weight decreased
     Route: 048
     Dates: start: 20150101, end: 20190322
  3. FARXIGA [Suspect]
     Active Substance: DAPAGLIFLOZIN PROPANEDIOL
     Indication: Blood pressure abnormal
     Route: 048
     Dates: start: 20150101, end: 20190322
  4. FARXIGA [Suspect]
     Active Substance: DAPAGLIFLOZIN PROPANEDIOL
     Indication: Type 2 diabetes mellitus
     Route: 048
     Dates: start: 20180409
  5. FARXIGA [Suspect]
     Active Substance: DAPAGLIFLOZIN PROPANEDIOL
     Indication: Weight decreased
     Route: 048
     Dates: start: 20180409
  6. FARXIGA [Suspect]
     Active Substance: DAPAGLIFLOZIN PROPANEDIOL
     Indication: Blood pressure abnormal
     Route: 048
     Dates: start: 20180409
  7. OMEPRAZOLE [Concomitant]
     Active Substance: OMEPRAZOLE
     Route: 048
     Dates: start: 20171229
  8. PANTOPRAZOLE [Concomitant]
     Active Substance: PANTOPRAZOLE
     Dates: start: 20190225
  9. SYMBICORT [Concomitant]
     Active Substance: BUDESONIDE\FORMOTEROL FUMARATE DIHYDRATE
     Dosage: 2 PUFFS TWICE A DAY
     Route: 048
     Dates: start: 20170316
  10. ATORVASTATIN [Concomitant]
     Active Substance: ATORVASTATIN
     Route: 048
     Dates: start: 20170511
  11. TIZANIDINE [Concomitant]
     Active Substance: TIZANIDINE
     Dosage: 20.0MG EVERY 4 - 6 HOURS
     Route: 048
     Dates: start: 20180125
  12. MONTELUKAST [Concomitant]
     Active Substance: MONTELUKAST SODIUM
     Route: 048
     Dates: start: 20170125
  13. NOVOLOG [Concomitant]
     Active Substance: INSULIN ASPART
     Route: 058
     Dates: start: 20180216
  14. METFORMIN [Concomitant]
     Active Substance: METFORMIN HYDROCHLORIDE
     Route: 048
     Dates: start: 20180221
  15. INVOKANA [Concomitant]
     Active Substance: CANAGLIFLOZIN
     Route: 048
     Dates: start: 20180214
  16. MELOXICAM [Concomitant]
     Active Substance: MELOXICAM
     Route: 048
     Dates: start: 20171002
  17. MELATONIN [Concomitant]
     Active Substance: MELATONIN
     Route: 048
     Dates: start: 20171006
  18. GABAPENTIN [Concomitant]
     Active Substance: GABAPENTIN
     Route: 048
     Dates: start: 20171010
  19. IBUPROFEN [Concomitant]
     Active Substance: IBUPROFEN
     Route: 048
     Dates: start: 20180328
  20. BUPROPION [Concomitant]
     Active Substance: BUPROPION
     Route: 048
     Dates: start: 20180410
  21. VITAMIN D [Concomitant]
     Active Substance: VITAMIN D NOS
     Dosage: 50,000 IU
     Route: 048
     Dates: start: 20180413
  22. CIPROFLOXACIN [Concomitant]
     Active Substance: CIPROFLOXACIN
     Route: 048
     Dates: start: 20180416
  23. CLINDAMYCIN [Concomitant]
     Active Substance: CLINDAMYCIN
     Route: 048
     Dates: start: 20180419
  24. ACETAMINOPHEN\HYDROCODONE BITARTRATE [Concomitant]
     Active Substance: ACETAMINOPHEN\HYDROCODONE BITARTRATE
     Dosage: 5-325 TB DAILY
     Route: 048
     Dates: start: 20180419
  25. ACETAMINOPHEN\OXYCODONE HYDROCHLORIDE [Concomitant]
     Active Substance: ACETAMINOPHEN\OXYCODONE HYDROCHLORIDE
     Dosage: 325 MG DAILY
     Route: 048
     Dates: start: 20180504
  26. IPRATROPIUM [Concomitant]
     Active Substance: IPRATROPIUM
     Dosage: 325 MG DAILY
     Route: 048
     Dates: start: 20180504
  27. DAKIN [Concomitant]
     Dosage: 0.125% SOLUTION
     Dates: start: 20180529
  28. AMOXICILLIN [Concomitant]
     Active Substance: AMOXICILLIN
     Route: 048
     Dates: start: 20180627
  29. TRIMETHOPRIM/SULFAMETHOXYPYRIDAZINE [Concomitant]
  30. DOXYCYCLINE HYCLATE [Concomitant]
     Active Substance: DOXYCYCLINE HYCLATE
  31. VIRTUSSIN [Concomitant]
  32. HUMALOG [Concomitant]
     Active Substance: INSULIN LISPRO
  33. OXAPROZIN [Concomitant]
     Active Substance: OXAPROZIN
  34. DOXEPIN [Concomitant]
     Active Substance: DOXEPIN
  35. AMOXICILLIN\CLAVULANATE POTASSIUM [Concomitant]
     Active Substance: AMOXICILLIN\CLAVULANATE POTASSIUM
  36. HYDROMET [Concomitant]
     Active Substance: HOMATROPINE METHYLBROMIDE\HYDROCODONE BITARTRATE
  37. LIDOCAINE [Concomitant]
     Active Substance: LIDOCAINE
  38. APIDRA [Concomitant]
     Active Substance: INSULIN GLULISINE
  39. FLUCONAZOLE [Concomitant]
     Active Substance: FLUCONAZOLE
  40. BENZONATATE [Concomitant]
     Active Substance: BENZONATATE
  41. LISINOPRIL [Concomitant]
     Active Substance: LISINOPRIL
  42. POTASSIUM CHLORIDE [Concomitant]
     Active Substance: POTASSIUM CHLORIDE
  43. NYSTOP [Concomitant]
     Active Substance: NYSTATIN
  44. BYDUREON [Concomitant]
     Active Substance: EXENATIDE
  45. DICLOFENAC [Concomitant]
     Active Substance: DICLOFENAC
  46. LUNESTA [Concomitant]
     Active Substance: ESZOPICLONE
  47. TEMAZEPAM [Concomitant]
     Active Substance: TEMAZEPAM
  48. BETAMETHASONE DIPROPIONATE/CLIOQUINOL [Concomitant]
  49. AZELEX [Concomitant]
     Active Substance: AZELAIC ACID
  50. CEFDINIR [Concomitant]
     Active Substance: CEFDINIR
  51. CHANTIX [Concomitant]
     Active Substance: VARENICLINE TARTRATE
  52. MISOPROSTOL [Concomitant]
     Active Substance: MISOPROSTOL
  53. VANCOMYCIN [Concomitant]
     Active Substance: VANCOMYCIN
     Dates: start: 20190225
  54. ZOSYN [Concomitant]
     Active Substance: PIPERACILLIN SODIUM\TAZOBACTAM SODIUM
  55. KETOROLAC [Concomitant]
     Active Substance: KETOROLAC TROMETHAMINE
  56. DEXTROSE [Concomitant]
     Active Substance: DEXTROSE
  57. GLUCAGON [Concomitant]
     Active Substance: GLUCAGON
  58. NITROSTAT [Concomitant]
     Active Substance: NITROGLYCERIN
  59. CEPACOL [Concomitant]
     Active Substance: BENZOCAINE
  60. DUONEB [Concomitant]
     Active Substance: ALBUTEROL SULFATE\IPRATROPIUM BROMIDE
  61. DOCUSATE SODIUM [Concomitant]
     Active Substance: DOCUSATE SODIUM
  62. SENOKOT [Concomitant]
     Active Substance: SENNOSIDES
     Dates: start: 20180425
  63. LOVENOX [Concomitant]
     Active Substance: ENOXAPARIN SODIUM
  64. CHLORHEXIDINE [Concomitant]
     Active Substance: CHLORHEXIDINE
  65. FENTANYL [Concomitant]
     Active Substance: FENTANYL
  66. SODIUM CHLORIDE [Concomitant]
     Active Substance: SODIUM CHLORIDE
  67. PROPOFOL [Concomitant]
     Active Substance: PROPOFOL
     Dates: start: 20190225
  68. NICOTINE [Concomitant]
     Active Substance: NICOTINE
  69. CETIRIZINE [Concomitant]
     Active Substance: CETIRIZINE HYDROCHLORIDE
  70. ALBUTEROL SULFATE [Concomitant]
     Active Substance: ALBUTEROL SULFATE
  71. SUCCINYLCHOLINE [Concomitant]
     Active Substance: SUCCINYLCHOLINE
     Dates: start: 20190225
  72. ZOFRAN [Concomitant]
     Active Substance: ONDANSETRON HYDROCHLORIDE
  73. NABUMETONE [Concomitant]
     Active Substance: NABUMETONE
  74. SODIUM HYPOCHLORITE [Concomitant]
     Active Substance: SODIUM HYPOCHLORITE

REACTIONS (17)
  - Fournier^s gangrene [Unknown]
  - Perirectal abscess [Unknown]
  - Sepsis [Unknown]
  - Abscess limb [Unknown]
  - Abscess [Unknown]
  - Perineal abscess [Unknown]
  - Tooth abscess [Unknown]
  - Groin abscess [Unknown]
  - Escherichia sepsis [Unknown]
  - Cellulitis [Unknown]
  - Necrotising fasciitis [Unknown]
  - Urinary tract infection [Unknown]
  - Vulval abscess [Unknown]
  - Subcutaneous abscess [Unknown]
  - Carbuncle [Unknown]
  - Subcutaneous abscess [Unknown]
  - Rectal abscess [Unknown]

NARRATIVE: CASE EVENT DATE: 20180424
